FAERS Safety Report 9454525 (Version 1)
Quarter: 2013Q3

REPORT INFORMATION
  Report Type: Spontaneous
  Country: US (occurrence: US)
  Receive Date: 20130812
  Receipt Date: 20130812
  Transmission Date: 20140515
  Serious: Yes (Other)
  Sender: FDA-Public Use
  Company Number: US-UCBSA-094282

PATIENT
  Age: 33 Year
  Sex: Female
  Weight: 72.57 kg

DRUGS (2)
  1. KEPPRA [Suspect]
     Dates: start: 2005, end: 201211
  2. NO CONCOMITANT MEDICATION [Concomitant]

REACTIONS (2)
  - Intestinal obstruction [Unknown]
  - Hernia obstructive [Unknown]
